FAERS Safety Report 8795961 (Version 1)
Quarter: 2012Q4

REPORT INFORMATION
  Report Type: 
  Country: US (occurrence: US)
  Receive Date: 20120920
  Receipt Date: 20120920
  Transmission Date: 20130627
  Serious: No
  Sender: FDA-Public Use
  Company Number: US-TEVA-359510USA

PATIENT

DRUGS (1)
  1. AZILECT [Suspect]
     Route: 048

REACTIONS (1)
  - Alopecia [Not Recovered/Not Resolved]
